FAERS Safety Report 18866803 (Version 3)
Quarter: 2021Q4

REPORT INFORMATION
  Report Type: Report from Study
  Country: US (occurrence: US)
  Receive Date: 20210208
  Receipt Date: 20211226
  Transmission Date: 20220303
  Serious: Yes (Hospitalization, Other)
  Sender: FDA-Public Use
  Company Number: US-ABBVIE-21K-163-3758771-00

PATIENT
  Age: 63 Year
  Sex: Female
  Weight: 61.290 kg

DRUGS (3)
  1. RINVOQ [Suspect]
     Active Substance: UPADACITINIB
     Indication: Rheumatoid arthritis
     Route: 048
     Dates: start: 202008
  2. HUMIRA [Suspect]
     Active Substance: ADALIMUMAB
     Indication: Product used for unknown indication
     Route: 058
     Dates: start: 202006
  3. AMLODIPINE [Concomitant]
     Active Substance: AMLODIPINE BESYLATE
     Indication: Hypertension

REACTIONS (9)
  - Spinal fracture [Recovered/Resolved with Sequelae]
  - Traumatic shock [Recovering/Resolving]
  - Nodule [Recovered/Resolved]
  - Rib fracture [Recovered/Resolved with Sequelae]
  - Loss of consciousness [Recovered/Resolved with Sequelae]
  - Fall [Recovering/Resolving]
  - Rheumatoid arthritis [Recovering/Resolving]
  - Memory impairment [Unknown]
  - Accidental overdose [Unknown]

NARRATIVE: CASE EVENT DATE: 20200801
